FAERS Safety Report 23580342 (Version 1)
Quarter: 2024Q1

REPORT INFORMATION
  Report Type: Report from Study
  Country: US (occurrence: US)
  Receive Date: 20240229
  Receipt Date: 20240229
  Transmission Date: 20240410
  Serious: Yes (Hospitalization, Other)
  Sender: FDA-Public Use
  Company Number: US-GILEAD-2024-0663419

PATIENT
  Age: 16 Year
  Sex: Male

DRUGS (2)
  1. AZTREONAM LYSINE [Suspect]
     Active Substance: AZTREONAM LYSINE
     Indication: Cystic fibrosis lung
     Dosage: 75 MG, TID (VIA PARI ALTERA NEBULIZER 3 TIMES A DAY FOR 28 DAYS ON AND 28 DAYS OFF)
     Route: 055
     Dates: start: 202304
  2. PULMOZYME [Concomitant]
     Active Substance: DORNASE ALFA
     Indication: Bacterial infection
     Dosage: 2.5 MG, QID
     Route: 055
     Dates: start: 202209

REACTIONS (1)
  - Cystic fibrosis [Not Recovered/Not Resolved]
